FAERS Safety Report 11181428 (Version 2)
Quarter: 2015Q3

REPORT INFORMATION
  Report Type: Spontaneous
  Country: US (occurrence: US)
  Receive Date: 20150611
  Receipt Date: 20150914
  Transmission Date: 20151125
  Serious: No
  Sender: FDA-Public Use
  Company Number: US-ASTELLAS-2015US011996

PATIENT
  Age: 68 Year
  Sex: Male

DRUGS (3)
  1. XTANDI [Suspect]
     Active Substance: ENZALUTAMIDE
     Indication: PROSTATE CANCER
     Route: 048
     Dates: start: 20140724
  2. XTANDI [Suspect]
     Active Substance: ENZALUTAMIDE
     Route: 065
  3. XTANDI [Suspect]
     Active Substance: ENZALUTAMIDE
     Dosage: 160 MG, ONCE DAILY, 4 X 40 MG
     Route: 048
     Dates: start: 20140730

REACTIONS (4)
  - Underdose [Unknown]
  - Hypoaesthesia [Unknown]
  - Paraesthesia [Unknown]
  - Hypoaesthesia [Unknown]

NARRATIVE: CASE EVENT DATE: 20150625
